FAERS Safety Report 20073347 (Version 1)
Quarter: 2021Q4

REPORT INFORMATION
  Report Type: Report from Study
  Country: FR (occurrence: FR)
  Receive Date: 20211116
  Receipt Date: 20211116
  Transmission Date: 20220303
  Serious: Yes (Other)
  Sender: FDA-Public Use
  Company Number: FR-JNJFOC-20211059904

PATIENT
  Age: 59 Year
  Sex: Female

DRUGS (4)
  1. DEXAMETHASONE [Suspect]
     Active Substance: DEXAMETHASONE
     Indication: Plasma cell myeloma
     Dosage: 2 WEEKS PER CYCLE. TREATMENT DURATION: 14.6 MONTHS.
     Route: 065
     Dates: start: 2018, end: 20190129
  2. LENALIDOMIDE [Suspect]
     Active Substance: LENALIDOMIDE
     Indication: Plasma cell myeloma
     Dosage: 2 WEEKS PER CYCLE. TREATMENT DURATION: 14.6 MONTHS.
     Route: 065
     Dates: start: 2018, end: 20190129
  3. MELPHALAN [Suspect]
     Active Substance: MELPHALAN
     Indication: Plasma cell myeloma
     Dosage: 1 WEEK PER CYCLE. TREATMENT DURATION: 14.6 MONTHS.
     Route: 065
     Dates: start: 2018, end: 20190129
  4. VELCADE [Suspect]
     Active Substance: BORTEZOMIB
     Indication: Plasma cell myeloma
     Dosage: 2 WEEKS PER CYCLE. TREATMENT DURATION: 14.6 MONTHS.
     Route: 065
     Dates: start: 2018, end: 20190129

REACTIONS (1)
  - Atrial fibrillation [Unknown]
